FAERS Safety Report 17001147 (Version 1)
Quarter: 2019Q4

REPORT INFORMATION
  Report Type: Spontaneous
  Country: JP (occurrence: JP)
  Receive Date: 20191106
  Receipt Date: 20191106
  Transmission Date: 20200122
  Serious: Yes (Other)
  Sender: FDA-Public Use
  Company Number: JP-BAYER-2019-195851

PATIENT
  Sex: Female

DRUGS (1)
  1. EMPECID [Suspect]
     Active Substance: CLOTRIMAZOLE
     Indication: EAR INFECTION FUNGAL
     Dosage: UNK
     Route: 061
     Dates: start: 201907

REACTIONS (6)
  - Hypoacusis [None]
  - Off label use [None]
  - Product use in unapproved indication [None]
  - Ear infection fungal [None]
  - Otorrhoea [None]
  - Ear discomfort [None]
